FAERS Safety Report 15838059 (Version 6)
Quarter: 2019Q1

REPORT INFORMATION
  Report Type: Report from Study
  Country: DE (occurrence: DE)
  Receive Date: 20190117
  Receipt Date: 20190308
  Transmission Date: 20190417
  Serious: Yes (Other)
  Sender: FDA-Public Use
  Company Number: DE-ROCHE-2244173

PATIENT
  Age: 74 Year
  Sex: Female
  Weight: 86 kg

DRUGS (5)
  1. NOVALGIN (METAMIZOLE SODIUM) [Concomitant]
     Active Substance: METAMIZOLE SODIUM
     Indication: HEADACHE
     Route: 065
     Dates: start: 20190109
  2. ATEZOLIZUMAB. [Suspect]
     Active Substance: ATEZOLIZUMAB
     Indication: HEPATOCELLULAR CARCINOMA
     Dosage: DATE OF MOST RECENT DOSE OF ATEZOLIZUMAB PRIOR TO THE ONSET OF INFUSION RELATED ALLERGIC REACTION (F
     Route: 042
     Dates: start: 20181221
  3. BEVACIZUMAB. [Suspect]
     Active Substance: BEVACIZUMAB
     Indication: HEPATOCELLULAR CARCINOMA
     Dosage: DATE OF MOST RECENT DOSE OF BEVACIZUMAB PRIOR TO THE ONSET OF INFUSION RELATED ALLERGIC REACTION (FI
     Route: 042
     Dates: start: 20181221
  4. TAVEGIL [Concomitant]
     Active Substance: CLEMASTINE FUMARATE
     Dosage: PRE MEDICATION
     Route: 065
     Dates: start: 20190130, end: 20190130
  5. TAVEGIL [Concomitant]
     Active Substance: CLEMASTINE FUMARATE
     Dosage: TREATMENT
     Route: 065
     Dates: start: 20190130, end: 20190130

REACTIONS (1)
  - Infusion related reaction [Recovered/Resolved]

NARRATIVE: CASE EVENT DATE: 20190110
